FAERS Safety Report 5477907-X (Version None)
Quarter: 2007Q4

REPORT INFORMATION
  Report Type: 
  Country: None (occurrence: None)
  Receive Date: 20071005
  Receipt Date: 20070926
  Transmission Date: 20080405
  Serious: Yes (Other)
  Sender: FDA-Public Use
  Company Number: PHBS2007BR15930

PATIENT
  Age: 25 Year
  Sex: Female
  Weight: 56 kg

DRUGS (1)
  1. TEGRETOL [Suspect]
     Dates: start: 19870101, end: 19900101

REACTIONS (5)
  - CONVULSION [None]
  - CRYING [None]
  - HEADACHE [None]
  - MOVEMENT DISORDER [None]
  - SYNCOPE [None]
